FAERS Safety Report 10169988 (Version 1)
Quarter: 2014Q2

REPORT INFORMATION
  Report Type: Spontaneous
  Country: GB (occurrence: GB)
  Receive Date: 20140513
  Receipt Date: 20140513
  Transmission Date: 20141212
  Serious: Yes (Other)
  Sender: FDA-Public Use
  Company Number: PHHY2014GB057320

PATIENT
  Age: 34 Year
  Sex: Female

DRUGS (2)
  1. CO-AMOXICLAV [Suspect]
     Indication: VAGINAL INFECTION
     Dates: end: 20140414
  2. METRONIDAZOLE [Concomitant]
     Indication: VAGINAL INFECTION
     Dosage: UNK UKN, UNK

REACTIONS (4)
  - Influenza like illness [Unknown]
  - Melaena [Unknown]
  - Dyspnoea [Unknown]
  - Abdominal pain [Unknown]
